FAERS Safety Report 5190145-3 (Version None)
Quarter: 2006Q4

REPORT INFORMATION
  Report Type: 
  Country: None (occurrence: None)
  Receive Date: 20061222
  Receipt Date: 20060928
  Transmission Date: 20070319
  Serious: Yes (Other)
  Sender: FDA-Public Use
  Company Number: NL-BAYER-200614630GDS

PATIENT
  Age: 67 Year
  Sex: Male

DRUGS (2)
  1. NEXAVAR [Suspect]
     Indication: RENAL CELL CARCINOMA STAGE UNSPECIFIED
     Route: 048
  2. NEXAVAR [Suspect]
     Route: 048
     Dates: start: 20060930, end: 20061109

REACTIONS (8)
  - ALOPECIA [None]
  - BLISTER [None]
  - CHEST DISCOMFORT [None]
  - CHEST PAIN [None]
  - NAUSEA [None]
  - PAIN IN EXTREMITY [None]
  - SOMNOLENCE [None]
  - SYNCOPE [None]
